FAERS Safety Report 4282962-9 (Version None)
Quarter: 2004Q1

REPORT INFORMATION
  Report Type: 
  Country: None (occurrence: None)
  Receive Date: 20040130
  Receipt Date: 20040105
  Transmission Date: 20041129
  Serious: Yes (Hospitalization)
  Sender: FDA-Public Use
  Company Number: ES-BRISTOL-MYERS SQUIBB COMPANY-12468757

PATIENT
  Age: 68 Year
  Sex: Female
  Weight: 59 kg

DRUGS (5)
  1. CISPLATIN [Suspect]
     Indication: ENDOMETRIAL CANCER
     Dosage: CUMULATIVE DOSE: 408.35 MG
     Route: 042
     Dates: start: 20031219, end: 20031219
  2. ADRIAMYCIN PFS [Suspect]
     Indication: ENDOMETRIAL CANCER
     Dosage: CUMULATIVE DOSE: 491.28 MG
     Route: 042
     Dates: start: 20031219, end: 20031219
  3. OMEPRAZOLE [Concomitant]
     Dates: start: 20031001
  4. DUPHALAC [Concomitant]
     Dates: start: 20031101
  5. ALMAX [Concomitant]
     Dates: start: 20031101

REACTIONS (4)
  - ANAEMIA [None]
  - NEUTROPENIA [None]
  - RECTAL HAEMORRHAGE [None]
  - THROMBOCYTOPENIA [None]
